FAERS Safety Report 17223264 (Version 1)
Quarter: 2020Q1

REPORT INFORMATION
  Report Type: Spontaneous
  Country: NL (occurrence: NL)
  Receive Date: 20200102
  Receipt Date: 20200102
  Transmission Date: 20200409
  Serious: Yes (Other)
  Sender: FDA-Public Use
  Company Number: NL-TEVA-2019-NL-1160367

PATIENT
  Sex: Male
  Weight: 72 kg

DRUGS (6)
  1. COMBODART 0,5MG/0,4MG [Concomitant]
     Dosage: 1D1T   (1 DOSAGE FORMS)
  2. OMEPRAZOL 20MG [Concomitant]
     Dosage: IF NECESSARY,  1D1T  (20 MG)
  3. HYDROCHLOORTHIAZIDE TABLET, 12,5 MG (MILLIGRAM) [Suspect]
     Active Substance: HYDROCHLOROTHIAZIDE
     Indication: HYPERTENSION
     Dosage: 1D1T  (12 MG)
     Dates: start: 20190410, end: 20191017
  4. COLECALCIFEROL 10 UG [Concomitant]
     Dosage: 1D1T   (10 MCG)
  5. SIMVASTATINE 20MG [Concomitant]
     Dosage: A 1T (20 MG)
  6. DICLOFENAC (ZELDEN) [Concomitant]
     Dosage: IF NECESSARY,  1D1T

REACTIONS (2)
  - Condition aggravated [Recovering/Resolving]
  - Urinary retention [Recovering/Resolving]
